FAERS Safety Report 4364593-5 (Version None)
Quarter: 2004Q2

REPORT INFORMATION
  Report Type: 
  Country: None (occurrence: None)
  Receive Date: 20040525
  Receipt Date: 20040513
  Transmission Date: 20050107
  Serious: Yes (Hospitalization)
  Sender: FDA-Public Use
  Company Number: TPA2004A00607

PATIENT
  Age: 89 Year
  Sex: Female
  Weight: 49.4421 kg

DRUGS (11)
  1. ACTOS [Suspect]
     Indication: DIABETES MELLITUS NON-INSULIN-DEPENDENT
     Dosage: 15 MG, 1 IN 1 D, PER ORAL
     Route: 048
     Dates: start: 20030402
  2. LASIX [Concomitant]
  3. PROTONIX [Concomitant]
  4. DIGOXIN [Concomitant]
  5. DETROL LA (TOLTERODINE L-TARTRATE) [Concomitant]
  6. LIBRIUM [Concomitant]
  7. SLOW-K [Concomitant]
  8. LIPITOR [Concomitant]
  9. SURFAK (DOCUSATE CALCIUM) [Concomitant]
  10. DARVON [Concomitant]
  11. GLUCOTROL XL [Concomitant]

REACTIONS (8)
  - BARIUM SWALLOW ABNORMAL [None]
  - CONFUSIONAL STATE [None]
  - DEHYDRATION [None]
  - FALL [None]
  - OESOPHAGEAL STENOSIS [None]
  - PYREXIA [None]
  - SEPSIS [None]
  - URINARY TRACT INFECTION [None]
